FAERS Safety Report 4842444-X (Version None)
Quarter: 2005Q4

REPORT INFORMATION
  Report Type: 
  Country: None (occurrence: None)
  Receive Date: 20051201
  Receipt Date: 20051123
  Transmission Date: 20060501
  Serious: Yes (Other)
  Sender: FDA-Public Use
  Company Number: AU-BRISTOL-MYERS SQUIBB COMPANY-13195060

PATIENT
  Sex: Male

DRUGS (1)
  1. AVAPRO [Suspect]
     Route: 048

REACTIONS (5)
  - ACCIDENTAL OVERDOSE [None]
  - HEADACHE [None]
  - INSOMNIA [None]
  - MEDICATION ERROR [None]
  - TINNITUS [None]
